FAERS Safety Report 6218167-1 (Version None)
Quarter: 2009Q2

REPORT INFORMATION
  Report Type: 
  Country: None (occurrence: None)
  Receive Date: 20090608
  Receipt Date: 20090601
  Transmission Date: 20091009
  Serious: Yes (Death, Hospitalization, Disabling)
  Sender: FDA-Public Use
  Company Number: US-CELGENEUS-163-C5013-09030612

PATIENT
  Sex: Male
  Weight: 130.9 kg

DRUGS (14)
  1. CC-5013 [Suspect]
     Route: 048
     Dates: start: 20081201, end: 20090302
  2. CC-5013 [Suspect]
     Route: 048
     Dates: start: 20081209, end: 20081223
  3. FLUDARABINE PHOSPHATE [Suspect]
     Route: 065
     Dates: start: 20080101, end: 20080501
  4. CYTOXAN [Suspect]
     Route: 065
     Dates: start: 20080101, end: 20080501
  5. RITUXAN [Suspect]
     Route: 065
     Dates: start: 20080101, end: 20080501
  6. NEUPOGEN [Concomitant]
     Indication: NEUTROPENIA
     Route: 065
  7. ALLOPURINOL [Concomitant]
     Indication: PROPHYLAXIS
     Route: 048
     Dates: start: 20081209
  8. TOPROL-XL [Concomitant]
     Route: 048
     Dates: start: 20080101
  9. LISINOPRIL [Concomitant]
     Indication: HYPERTENSION
     Route: 048
     Dates: start: 20080101
  10. ASCORBIC ACID [Concomitant]
     Route: 048
     Dates: start: 20080101
  11. METAMUCIL [Concomitant]
     Indication: CONSTIPATION PROPHYLAXIS
     Route: 048
     Dates: start: 20080101
  12. NEUPOGEN [Concomitant]
     Indication: LEUKOPENIA
     Route: 051
     Dates: start: 20081117, end: 20081119
  13. NEUPOGEN [Concomitant]
     Indication: NEUTROPENIA
     Route: 051
     Dates: start: 20081223
  14. METOPROLOL SUCCINATE [Concomitant]
     Indication: DRUG USE FOR UNKNOWN INDICATION
     Route: 065

REACTIONS (2)
  - JC VIRUS INFECTION [None]
  - PROGRESSIVE MULTIFOCAL LEUKOENCEPHALOPATHY [None]
